FAERS Safety Report 5794143-8 (Version None)
Quarter: 2008Q2

REPORT INFORMATION
  Report Type: 
  Country: None (occurrence: None)
  Receive Date: 20080627
  Receipt Date: 20080619
  Transmission Date: 20081010
  Serious: Yes (Hospitalization)
  Sender: FDA-Public Use
  Company Number: JP-MERCK-0806USA01110

PATIENT
  Age: 73 Year
  Sex: Male
  Weight: 60 kg

DRUGS (23)
  1. DECADRON [Suspect]
     Indication: INFLAMMATION
     Route: 048
     Dates: start: 20051018, end: 20051109
  2. DECADRON [Suspect]
     Route: 048
     Dates: start: 20051110, end: 20051116
  3. DECADRON [Suspect]
     Route: 048
     Dates: start: 20051117, end: 20051123
  4. DECADRON [Suspect]
     Route: 048
     Dates: start: 20051124, end: 20051130
  5. DECADRON [Suspect]
     Route: 048
     Dates: start: 20051201, end: 20051214
  6. DECADRON [Suspect]
     Route: 048
     Dates: start: 20051215, end: 20051221
  7. DECADRON [Suspect]
     Route: 048
     Dates: start: 20051222, end: 20051228
  8. DECADRON [Suspect]
     Route: 048
     Dates: start: 20051229, end: 20060104
  9. DECADRON [Suspect]
     Route: 048
     Dates: start: 20060105, end: 20060111
  10. HORMONES (UNSPECIFIED) [Suspect]
     Indication: INCREASED BRONCHIAL SECRETION
     Route: 065
  11. HORMONES (UNSPECIFIED) [Suspect]
  12. PREDNISOLONE [Suspect]
     Indication: INCREASED BRONCHIAL SECRETION
     Route: 048
  13. PREDNISOLONE [Suspect]
     Route: 048
  14. PREDNISOLONE [Suspect]
     Route: 048
  15. ONON [Concomitant]
     Indication: ASTHMA
     Route: 048
  16. ERYTHROMYCIN [Concomitant]
     Indication: INCREASED BRONCHIAL SECRETION
     Route: 065
  17. [THERAPY UNSPECIFIED] [Concomitant]
     Indication: INCREASED BRONCHIAL SECRETION
     Route: 065
  18. HOKUNALIN [Concomitant]
     Indication: ASTHMA
     Route: 065
  19. QVAR 40 [Concomitant]
     Indication: ASTHMA
  20. SEREVENT [Concomitant]
     Indication: ASTHMA
  21. THEO-DUR [Concomitant]
     Indication: ASTHMA
     Route: 048
  22. CLARITHROMYCIN [Concomitant]
     Indication: INFLAMMATION
     Route: 048
  23. MUCODYNE [Concomitant]
     Indication: SPUTUM RETENTION
     Route: 048

REACTIONS (3)
  - DIABETES MELLITUS [None]
  - GAIT DISTURBANCE [None]
  - MYOPATHY [None]
